FAERS Safety Report 8187371-8 (Version None)
Quarter: 2012Q1

REPORT INFORMATION
  Report Type: 
  Country: None (occurrence: None)
  Receive Date: 20120306
  Receipt Date: 20120229
  Transmission Date: 20120608
  Serious: Yes (Hospitalization)
  Sender: FDA-Public Use
  Company Number: US-B.I. PHARMACEUTICALS,INC./RIDGEFIELD-2012-BP-02666BP

PATIENT
  Sex: Male
  Weight: 59.8 kg

DRUGS (10)
  1. ASPIRIN [Concomitant]
  2. MELOXICAM [Concomitant]
  3. TRAMADOL HCL [Concomitant]
  4. METHAZOLAMIDE [Concomitant]
  5. PRADAXA [Suspect]
     Indication: ATRIAL FIBRILLATION
     Dosage: 300 MG
     Route: 048
     Dates: start: 20120123, end: 20120131
  6. LIPITOR [Concomitant]
  7. M.V.I. [Concomitant]
  8. ACCUPRIL [Concomitant]
  9. TOPROL-XL [Concomitant]
  10. PRADAXA [Suspect]
     Indication: ATRIAL FLUTTER

REACTIONS (1)
  - TRANSIENT ISCHAEMIC ATTACK [None]
